FAERS Safety Report 9617522 (Version 2)
Quarter: 2013Q4

REPORT INFORMATION
  Report Type: Spontaneous
  Country: JP (occurrence: JP)
  Receive Date: 20131011
  Receipt Date: 20131025
  Transmission Date: 20140711
  Serious: Yes (Hospitalization)
  Sender: FDA-Public Use
  Company Number: JP-GLAXOSMITHKLINE-B0925200A

PATIENT
  Age: 81 Year
  Sex: Female
  Weight: 40 kg

DRUGS (2)
  1. VALTREX [Suspect]
     Indication: HERPES ZOSTER
     Dosage: 1000MG THREE TIMES PER DAY
     Route: 048
     Dates: start: 20130917, end: 20130920
  2. LOXONIN [Concomitant]
     Indication: TRIGEMINAL NEURALGIA
     Dosage: 60MG THREE TIMES PER DAY
     Route: 048
     Dates: start: 20130917, end: 20130920

REACTIONS (7)
  - Renal failure acute [Recovering/Resolving]
  - Toxic encephalopathy [Recovering/Resolving]
  - Renal impairment [Recovering/Resolving]
  - Dysarthria [Unknown]
  - Muscular weakness [Unknown]
  - Vomiting [Unknown]
  - Haematemesis [Recovering/Resolving]
